FAERS Safety Report 14873356 (Version 8)
Quarter: 2019Q4

REPORT INFORMATION
  Report Type: Spontaneous
  Country: US (occurrence: US)
  Receive Date: 20180510
  Receipt Date: 20191018
  Transmission Date: 20200122
  Serious: Yes (Other)
  Sender: FDA-Public Use
  Company Number: US-PFIZER INC-2018166025

PATIENT
  Age: 62 Year
  Sex: Female
  Weight: 122 kg

DRUGS (2)
  1. XELJANZ XR [Suspect]
     Active Substance: TOFACITINIB CITRATE
     Indication: AUTOIMMUNE DISORDER
     Dosage: 11 MG, DAILY
     Route: 048
     Dates: start: 201712
  2. XELJANZ XR [Suspect]
     Active Substance: TOFACITINIB CITRATE
     Indication: RHEUMATOID ARTHRITIS
     Dosage: 11 MG, UNK

REACTIONS (15)
  - Pain in extremity [Unknown]
  - Anaemia [Unknown]
  - Vitamin D deficiency [Unknown]
  - Poor quality sleep [Unknown]
  - Arthropathy [Unknown]
  - Arthralgia [Recovering/Resolving]
  - Joint stiffness [Unknown]
  - Dry eye [Recovering/Resolving]
  - Dry mouth [Recovering/Resolving]
  - Depression [Unknown]
  - Suicidal ideation [Unknown]
  - Musculoskeletal stiffness [Unknown]
  - Fatigue [Unknown]
  - Disturbance in attention [Unknown]
  - Musculoskeletal disorder [Unknown]
